FAERS Safety Report 5029223-8 (Version None)
Quarter: 2006Q2

REPORT INFORMATION
  Report Type: 
  Country: None (occurrence: None)
  Receive Date: 20060613
  Receipt Date: 20060531
  Transmission Date: 20061013
  Serious: Yes (Disabling, Other)
  Sender: FDA-Public Use
  Company Number: 2006067231

PATIENT
  Age: 5 Month
  Sex: Female
  Weight: 7 kg

DRUGS (7)
  1. ZITHROMAX [Suspect]
     Indication: ILL-DEFINED DISORDER
     Dosage: 70 MG (70 MG, 1 IN 1 D); ORAL
     Route: 048
     Dates: start: 20060518, end: 20060518
  2. HOKUNALIN                        (TULOBUTEROL HYDROCHLORIDE) [Concomitant]
  3. ONON                (PRANLUKAST) [Concomitant]
  4. MUCOTRON (CARBOCISTEINE) [Concomitant]
  5. BIOFERMIN R (STREPTOCOCCUS FAECALIS) [Concomitant]
  6. PROCATEROL HCL [Concomitant]
  7. ASVERIN (TIPEPIDINE HIBENZATE) [Concomitant]

REACTIONS (9)
  - CRYING [None]
  - DIARRHOEA [None]
  - FOOD INTOLERANCE [None]
  - GAIT DISTURBANCE [None]
  - HYPERSENSITIVITY [None]
  - HYPOVENTILATION [None]
  - LOSS OF CONSCIOUSNESS [None]
  - SHOCK [None]
  - VOMITING [None]
